FAERS Safety Report 14842875 (Version 7)
Quarter: 2019Q1

REPORT INFORMATION
  Report Type: Spontaneous
  Country: US (occurrence: US)
  Receive Date: 20180503
  Receipt Date: 20190123
  Transmission Date: 20190417
  Serious: Yes (Hospitalization, Other)
  Sender: FDA-Public Use
  Company Number: US-TAKEDA-2018TUS014268

PATIENT
  Age: 70 Year
  Sex: Male
  Weight: 75.74 kg

DRUGS (25)
  1. ALLOPURINOL. [Suspect]
     Active Substance: ALLOPURINOL
     Dosage: 200 MG, UNK
     Route: 048
     Dates: end: 20180408
  2. BENAZEPRIL [Concomitant]
     Active Substance: BENAZEPRIL HYDROCHLORIDE
     Dosage: UNK
     Route: 065
     Dates: start: 2015
  3. GLIPIZIDE. [Concomitant]
     Active Substance: GLIPIZIDE
     Dosage: UNK
     Route: 065
     Dates: start: 20161012
  4. SODIUM BICARBONATE. [Concomitant]
     Active Substance: SODIUM BICARBONATE
     Dosage: UNK
     Route: 065
     Dates: start: 20171128
  5. POTASSIUM [Suspect]
     Active Substance: POTASSIUM
     Indication: ASTHENIA
  6. VITAMIN D3 [Concomitant]
     Active Substance: CHOLECALCIFEROL
     Dosage: UNK
     Route: 065
     Dates: start: 20030510
  7. COLCHICINE. [Suspect]
     Active Substance: COLCHICINE
     Dosage: 0.6 MG, UNK
     Route: 065
     Dates: start: 20171127, end: 20180408
  8. MAGNESIUM [Suspect]
     Active Substance: MAGNESIUM
     Indication: WEIGHT DECREASED
  9. METFORMIN [Concomitant]
     Active Substance: METFORMIN HYDROCHLORIDE
     Dosage: UNK
     Route: 065
     Dates: start: 2015
  10. SIMVASTATIN. [Concomitant]
     Active Substance: SIMVASTATIN
     Indication: GOUT
     Dosage: UNK
     Route: 065
     Dates: start: 2015
  11. ALLOPURINOL. [Suspect]
     Active Substance: ALLOPURINOL
     Indication: GOUT
     Dosage: 100 MG, BID
     Route: 048
     Dates: start: 2015, end: 20170925
  12. MAGNESIUM [Suspect]
     Active Substance: MAGNESIUM
     Indication: ASTHENIA
  13. COLCHICINE. [Suspect]
     Active Substance: COLCHICINE
     Indication: PROPHYLAXIS
     Dosage: 0.6 MG, UNK
     Route: 065
     Dates: start: 20170926, end: 20171025
  14. POTASSIUM [Suspect]
     Active Substance: POTASSIUM
     Indication: WEIGHT DECREASED
  15. MAGNESIUM [Suspect]
     Active Substance: MAGNESIUM
     Indication: BLOOD CREATINE PHOSPHOKINASE INCREASED
     Dosage: UNK
     Route: 065
  16. LEVOTHYROXINE. [Concomitant]
     Active Substance: LEVOTHYROXINE
     Dosage: UNK
     Route: 065
     Dates: start: 2003
  17. ALLOPURINOL. [Suspect]
     Active Substance: ALLOPURINOL
     Indication: BLOOD URIC ACID INCREASED
     Dosage: 200 MG, UNK
     Route: 048
     Dates: start: 20170927, end: 20180116
  18. SYMBICORT [Concomitant]
     Active Substance: BUDESONIDE\FORMOTEROL FUMARATE DIHYDRATE
     Dosage: UNK
     Route: 065
     Dates: start: 2015
  19. LESINURAD [Suspect]
     Active Substance: LESINURAD
     Indication: HYPERURICAEMIA
     Dosage: 100 MG, BID
     Route: 048
     Dates: start: 2015, end: 20170925
  20. LESINURAD [Suspect]
     Active Substance: LESINURAD
     Dosage: 200 MG, UNK
     Route: 065
     Dates: start: 20170927, end: 20171107
  21. LESINURAD [Suspect]
     Active Substance: LESINURAD
     Dosage: 200 MG, UNK
     Route: 065
     Dates: start: 20171115, end: 20180408
  22. POTASSIUM [Suspect]
     Active Substance: POTASSIUM
     Indication: BLOOD CREATINE PHOSPHOKINASE INCREASED
     Dosage: UNK
     Route: 065
  23. VALSARTAN. [Concomitant]
     Active Substance: VALSARTAN
     Dosage: UNK
     Route: 065
     Dates: start: 20180105, end: 20180601
  24. ASPIRIN                            /00002701/ [Concomitant]
     Active Substance: ASPIRIN
     Dosage: UNK
     Route: 065
     Dates: start: 2015
  25. FERROUS SULFATE. [Concomitant]
     Active Substance: FERROUS SULFATE
     Dosage: UNK
     Route: 065
     Dates: start: 20180330

REACTIONS (3)
  - Weight decreased [Recovered/Resolved]
  - Blood creatine phosphokinase increased [Recovered/Resolved]
  - Asthenia [Recovered/Resolved]

NARRATIVE: CASE EVENT DATE: 20180406
